FAERS Safety Report 4555810-7 (Version None)
Quarter: 2005Q1

REPORT INFORMATION
  Report Type: 
  Country: None (occurrence: None)
  Receive Date: 20050112
  Receipt Date: 20040909
  Transmission Date: 20050727
  Serious: Yes (Other)
  Sender: FDA-Public Use
  Company Number: PHEH2004US09711

PATIENT
  Age: 51 Year
  Sex: Male

DRUGS (14)
  1. SANDIMMUNE [Suspect]
     Indication: BONE MARROW TRANSPLANT
     Dosage: 200 MG, ONCE/SINGLE, IV INFUSION
     Dates: start: 20040908
  2. FLUDARABINE PHOSPHATE [Concomitant]
  3. DAPSONE [Concomitant]
  4. ACYCLOVIR [Concomitant]
  5. FLUCONAZOLE [Concomitant]
  6. MULTIVITAMINS PLUS IRON (FERROUS SULFATE, VITAMINS NOS) [Concomitant]
  7. ACTIGALL [Concomitant]
  8. PROTONIX [Concomitant]
  9. PREDNISONE [Concomitant]
  10. ZOFRAN [Concomitant]
  11. COMPAZINE [Concomitant]
  12. OXYCODONE (OXYCODONE) [Concomitant]
  13. CITRACAL (CALCIUM CITRATE) [Concomitant]
  14. TYLENOL [Concomitant]

REACTIONS (3)
  - ANAPHYLACTIC REACTION [None]
  - BRONCHOSPASM [None]
  - SNEEZING [None]
